APPROVED DRUG PRODUCT: BUSPIRONE HYDROCHLORIDE
Active Ingredient: BUSPIRONE HYDROCHLORIDE
Strength: 15MG
Dosage Form/Route: TABLET;ORAL
Application: A075119 | Product #003
Applicant: EGIS PLC
Approved: Jan 23, 2003 | RLD: No | RS: No | Type: DISCN